FAERS Safety Report 4353278-7 (Version None)
Quarter: 2004Q2

REPORT INFORMATION
  Report Type: 
  Country: None (occurrence: None)
  Receive Date: 20040428
  Receipt Date: 20040409
  Transmission Date: 20050107
  Serious: Yes (Other)
  Sender: FDA-Public Use
  Company Number: A0495804A

PATIENT
  Age: 41 Year
  Sex: Female

DRUGS (5)
  1. NICODERM CQ [Suspect]
     Indication: EX-SMOKER
     Dosage: 21 MG/PER DAY/ TRANSDERMAL
     Route: 062
     Dates: start: 20040121, end: 20040129
  2. ZOLPIDEM TARTRATE [Concomitant]
  3. LORAZEPAM [Concomitant]
  4. THYROID TAB [Concomitant]
  5. LEXAPRO [Concomitant]

REACTIONS (7)
  - BALANCE DISORDER [None]
  - DIPLOPIA [None]
  - DISORIENTATION [None]
  - FATIGUE [None]
  - LOSS OF CONSCIOUSNESS [None]
  - NAUSEA [None]
  - SEDATION [None]
